FAERS Safety Report 10682560 (Version 3)
Quarter: 2015Q1

REPORT INFORMATION
  Report Type: Spontaneous
  Country: US (occurrence: None)
  Receive Date: 20141224
  Receipt Date: 20150126
  Transmission Date: 20150720
  Serious: Yes (Hospitalization)
  Sender: FDA-Public Use
  Company Number: 2014-US-016605

PATIENT
  Age: 78 Year
  Sex: Male

DRUGS (1)
  1. XYREM [Suspect]
     Active Substance: SODIUM OXYBATE
     Indication: SLEEP DISORDER
     Route: 048
     Dates: start: 200210

REACTIONS (5)
  - Sleep disorder [None]
  - Off label use [None]
  - Transient ischaemic attack [None]
  - Chronic kidney disease [None]
  - Hypertension [None]

NARRATIVE: CASE EVENT DATE: 201412
